FAERS Safety Report 6343257-2 (Version None)
Quarter: 2009Q3

REPORT INFORMATION
  Report Type: 
  Country: None (occurrence: None)
  Receive Date: 20090908
  Receipt Date: 20090827
  Transmission Date: 20100115
  Serious: Yes (Other)
  Sender: FDA-Public Use
  Company Number: PHHY2009SE20989

PATIENT
  Sex: Male

DRUGS (8)
  1. LEPONEX [Suspect]
     Indication: MENTAL DISORDER
     Dosage: UNK
  2. LEPONEX [Suspect]
     Dosage: 375 MG
  3. LEPONEX [Suspect]
     Dosage: 275 MG, UNK
  4. LEPONEX [Suspect]
     Dosage: 300 MG, UNK
     Dates: start: 20090401
  5. LEPONEX [Suspect]
     Dosage: 275 MG, UNK
     Dates: start: 20090409
  6. LEPONEX [Suspect]
     Dosage: 375 MG, UNK
     Dates: start: 20090601
  7. ERGENYL [Concomitant]
  8. SERTRALINE HCL [Concomitant]

REACTIONS (5)
  - AGGRESSION [None]
  - DISABILITY [None]
  - MENTAL IMPAIRMENT [None]
  - NEUTROPHIL COUNT INCREASED [None]
  - PLATELET COUNT DECREASED [None]
